FAERS Safety Report 5519170-7 (Version None)
Quarter: 2007Q4

REPORT INFORMATION
  Report Type: 
  Country: None (occurrence: None)
  Receive Date: 20071116
  Receipt Date: 20071029
  Transmission Date: 20080405
  Serious: Yes (Other)
  Sender: FDA-Public Use
  Company Number: US-ASTRAZENECA-2007UW25175

PATIENT
  Age: 78 Year
  Sex: Female
  Weight: 60.8 kg

DRUGS (4)
  1. RHINOCORT [Suspect]
     Indication: SINUS CONGESTION
     Dosage: ONE SPRAY EACH NOSTRIL
     Route: 045
  2. CELEXA [Concomitant]
  3. REMINYL [Concomitant]
  4. PAPAVERINE [Concomitant]

REACTIONS (3)
  - HEADACHE [None]
  - INSOMNIA [None]
  - TRANSIENT ISCHAEMIC ATTACK [None]
